FAERS Safety Report 5358811-4 (Version None)
Quarter: 2007Q2

REPORT INFORMATION
  Report Type: 
  Country: None (occurrence: None)
  Receive Date: 20070615
  Receipt Date: 20070611
  Transmission Date: 20071010
  Serious: Yes (Life-Threatening, Hospitalization, Disabling)
  Sender: FDA-Public Use
  Company Number: PHMT2007CA01328

PATIENT
  Age: 51 Year
  Sex: Female
  Weight: 63.038 kg

DRUGS (4)
  1. MIACALCIN [Suspect]
     Indication: OSTEOPOROSIS
     Dosage: ONE SPRAY ONCE A DAY
     Route: 045
     Dates: start: 20050101, end: 20070201
  2. ESTRADOT [Concomitant]
     Dosage: 1/2 OF 37.5
     Route: 062
  3. CELEXA [Concomitant]
     Dosage: 20 MG, UNK
     Route: 048
  4. DICETEL [Concomitant]
     Dosage: 50 MG, TID
     Route: 048

REACTIONS (4)
  - BRONCHOSCOPY ABNORMAL [None]
  - CRYPTOGENIC ORGANISING PNEUMONIA [None]
  - DYSPNOEA [None]
  - OSTEOPOROSIS [None]
